FAERS Safety Report 5533171-4 (Version None)
Quarter: 2007Q4

REPORT INFORMATION
  Report Type: 
  Country: None (occurrence: None)
  Receive Date: 20071204
  Receipt Date: 20071122
  Transmission Date: 20080405
  Serious: Yes (Death)
  Sender: FDA-Public Use
  Company Number: AU-ROCHE-533214

PATIENT
  Age: 58 Year
  Sex: Female

DRUGS (4)
  1. XELODA [Suspect]
     Indication: BREAST CANCER
     Route: 065
  2. XELODA [Suspect]
     Dosage: DOSE WAS REDUCED
     Route: 065
  3. XELODA [Suspect]
     Dosage: DOSE WAS FURTHER REDUCED.
     Route: 065
  4. TAXOTERE [Concomitant]
     Dosage: SIX CYCLES OF DRUG WERE GIVEN.

REACTIONS (4)
  - ASCITES [None]
  - FATIGUE [None]
  - NAUSEA [None]
  - PAIN [None]
